FAERS Safety Report 10090135 (Version 2)
Quarter: 2014Q2

REPORT INFORMATION
  Report Type: Report from Study
  Country: US (occurrence: US)
  Receive Date: 20140421
  Receipt Date: 20140428
  Transmission Date: 20141212
  Serious: Yes (Disabling)
  Sender: FDA-Public Use
  Company Number: US-ACTELION-A-US2014-97613

PATIENT
  Age: 65 Year
  Sex: Male

DRUGS (9)
  1. VENTAVIS [Suspect]
     Indication: PULMONARY HYPERTENSION
     Dosage: 2.5 MCG, 5X/DAY
     Route: 055
     Dates: start: 20140116
  2. VENTAVIS [Suspect]
     Dosage: 5 MCG, 6X DAILY
     Route: 055
     Dates: start: 20140126, end: 20140401
  3. WARFARIN [Concomitant]
     Dosage: 7.5 MG, QD
  4. LASIX [Concomitant]
     Dosage: 40 MG, QD
  5. DIGOXIN [Concomitant]
     Dosage: 0.125 MG, QD
  6. OXYGEN [Concomitant]
     Dosage: UNK, CONTINUOUS 4-6 L
     Route: 055
  7. SYMBICORT [Concomitant]
     Dosage: 2 PUFF, UNK
  8. METOPROLOL [Concomitant]
     Dosage: 25 MG, BID
  9. KCL [Concomitant]

REACTIONS (9)
  - Constipation [Recovered/Resolved]
  - Fatigue [Recovered/Resolved]
  - Discomfort [Unknown]
  - Malaise [Unknown]
  - Decreased appetite [Recovered/Resolved]
  - Headache [Recovered/Resolved]
  - Nausea [Recovered/Resolved]
  - Syncope [Recovered/Resolved]
  - Blood pressure decreased [Recovered/Resolved]
